FAERS Safety Report 23621931 (Version 1)
Quarter: 2024Q1

REPORT INFORMATION
  Report Type: Spontaneous
  Country: US (occurrence: US)
  Receive Date: 20240312
  Receipt Date: 20240312
  Transmission Date: 20240409
  Serious: No
  Sender: FDA-Public Use
  Company Number: US-009507513-2403USA001042

PATIENT
  Sex: Female

DRUGS (2)
  1. KEYTRUDA [Suspect]
     Active Substance: PEMBROLIZUMAB
     Indication: Triple negative breast cancer
     Dosage: UNK, Q3W, ROUTE OF ADMINISTRATION: THREW MED PORT IN HER LEFT BREAST
     Route: 042
     Dates: start: 202304, end: 202402
  2. PREDNISONE [Suspect]
     Active Substance: PREDNISONE
     Indication: Adverse event
     Dosage: FORMULATION: PILLS
     Route: 048

REACTIONS (5)
  - Eczema [Not Recovered/Not Resolved]
  - Pain in extremity [Recovering/Resolving]
  - Peripheral swelling [Recovering/Resolving]
  - Gait inability [Recovering/Resolving]
  - Gastrooesophageal reflux disease [Recovering/Resolving]

NARRATIVE: CASE EVENT DATE: 20230101
